FAERS Safety Report 4932092-5 (Version None)
Quarter: 2006Q1

REPORT INFORMATION
  Report Type: 
  Country: None (occurrence: None)
  Receive Date: 20060303
  Receipt Date: 20050419
  Transmission Date: 20060701
  Serious: Yes (Disabling)
  Sender: FDA-Public Use
  Company Number: US-ROCHE-402474

PATIENT
  Sex: Female

DRUGS (1)
  1. ACCUTANE [Suspect]
     Indication: ACNE
     Route: 048
     Dates: start: 20030315, end: 20030715

REACTIONS (9)
  - AFFECT LABILITY [None]
  - CARDIAC DISORDER [None]
  - CHEST PAIN [None]
  - DEPRESSION [None]
  - EMOTIONAL DISORDER [None]
  - INJURY [None]
  - RECTAL HAEMORRHAGE [None]
  - RENAL DISORDER [None]
  - SUICIDAL IDEATION [None]
